FAERS Safety Report 26122769 (Version 2)
Quarter: 2025Q4

REPORT INFORMATION
  Report Type: Spontaneous
  Country: US (occurrence: US)
  Receive Date: 20251204
  Receipt Date: 20251215
  Transmission Date: 20260118
  Serious: Yes (Death, Hospitalization)
  Sender: TEVA
  Company Number: US-TEVA-VS-3397888

PATIENT
  Age: 55 Year
  Sex: Female

DRUGS (21)
  1. METHOTREXATE [Suspect]
     Active Substance: METHOTREXATE
     Indication: Myositis
     Route: 065
  2. DOXORUBICIN [Suspect]
     Active Substance: DOXORUBICIN
     Indication: Haemophagocytic lymphohistiocytosis
     Dosage: PART OF R-EPOCH CHEMOTHERAPY, SECOND CYCLE, RECEIVED 50% DOSE REDUCTION
     Route: 065
  3. DOXORUBICIN [Suspect]
     Active Substance: DOXORUBICIN
     Indication: Haemophagocytic lymphohistiocytosis
     Dosage: PART OF R-EPOCH CHEMOTHERAPY, THIRD CYCLE
     Route: 065
  4. DOXORUBICIN [Suspect]
     Active Substance: DOXORUBICIN
     Indication: Haemophagocytic lymphohistiocytosis
     Dosage: PART OF R-EPOCH CHEMOTHERAPY, FIRST CYCLE
     Route: 065
  5. RITUXIMAB [Suspect]
     Active Substance: RITUXIMAB
     Indication: Haemophagocytic lymphohistiocytosis
     Dosage: PART OF R-EPOCH CHEMOTHERAPY, SECOND CYCLE, RECEIVED 50% DOSE REDUCTION
     Route: 065
  6. RITUXIMAB [Suspect]
     Active Substance: RITUXIMAB
     Indication: Haemophagocytic lymphohistiocytosis
     Dosage: PART OF R-EPOCH CHEMOTHERAPY, FIRST CYCLE
     Route: 065
  7. RITUXIMAB [Suspect]
     Active Substance: RITUXIMAB
     Indication: Haemophagocytic lymphohistiocytosis
     Dosage: PART OF R-EPOCH CHEMOTHERAPY, THIRD CYCLE
     Route: 065
  8. PREDNISONE [Suspect]
     Active Substance: PREDNISONE
     Indication: Haemophagocytic lymphohistiocytosis
     Dosage: PART OF R-EPOCH CHEMOTHERAPY, SECOND CYCLE, RECEIVED 50% DOSE REDUCTION
     Route: 065
  9. PREDNISONE [Suspect]
     Active Substance: PREDNISONE
     Indication: Haemophagocytic lymphohistiocytosis
     Dosage: PART OF R-EPOCH CHEMOTHERAPY, THIRD CYCLE
     Route: 065
  10. PREDNISONE [Suspect]
     Active Substance: PREDNISONE
     Indication: Haemophagocytic lymphohistiocytosis
     Dosage: PART OF R-EPOCH CHEMOTHERAPY, FIRST CYCLE
     Route: 065
  11. ETOPOSIDE [Suspect]
     Active Substance: ETOPOSIDE
     Indication: Haemophagocytic lymphohistiocytosis
     Dosage: PART OF R-EPOCH CHEMOTHERAPY, THIRD CYCLE
     Route: 065
  12. ETOPOSIDE [Suspect]
     Active Substance: ETOPOSIDE
     Indication: Haemophagocytic lymphohistiocytosis
     Dosage: PART OF R-EPOCH CHEMOTHERAPY, SECOND CYCLE, RECEIVED 50% DOSE REDUCTION
     Route: 065
  13. ETOPOSIDE [Suspect]
     Active Substance: ETOPOSIDE
     Indication: Haemophagocytic lymphohistiocytosis
     Dosage: PART OF R-EPOCH CHEMOTHERAPY, FIRST CYCLE
     Route: 065
  14. DEXAMETHASONE [Suspect]
     Active Substance: DEXAMETHASONE
     Indication: Haemophagocytic lymphohistiocytosis
     Route: 065
  15. VINCRISTINE [Suspect]
     Active Substance: VINCRISTINE
     Indication: Haemophagocytic lymphohistiocytosis
     Dosage: PART OF R-EPOCH CHEMOTHERAPY, SECOND CYCLE, RECEIVED 50% DOSE REDUCTION
     Route: 065
  16. VINCRISTINE [Suspect]
     Active Substance: VINCRISTINE
     Indication: Haemophagocytic lymphohistiocytosis
     Dosage: PART OF R-EPOCH CHEMOTHERAPY, FIRST CYCLE
     Route: 065
  17. VINCRISTINE [Suspect]
     Active Substance: VINCRISTINE
     Indication: Haemophagocytic lymphohistiocytosis
     Dosage: PART OF R-EPOCH CHEMOTHERAPY, THIRD CYCLE
     Route: 065
  18. IMMUNE GLOBULIN NOS [Suspect]
     Active Substance: IMMUNE GLOBULIN NOS
     Indication: Lymphoma
     Route: 042
  19. CYCLOPHOSPHAMIDE [Suspect]
     Active Substance: CYCLOPHOSPHAMIDE
     Indication: Haemophagocytic lymphohistiocytosis
     Dosage: PART OF R-EPOCH CHEMOTHERAPY, THIRD CYCLE
     Route: 065
  20. CYCLOPHOSPHAMIDE [Suspect]
     Active Substance: CYCLOPHOSPHAMIDE
     Indication: Haemophagocytic lymphohistiocytosis
     Dosage: PART OF R-EPOCH CHEMOTHERAPY, FIRST CYCLE
     Route: 065
  21. CYCLOPHOSPHAMIDE [Suspect]
     Active Substance: CYCLOPHOSPHAMIDE
     Indication: Haemophagocytic lymphohistiocytosis
     Dosage: PART OF R-EPOCH CHEMOTHERAPY, SECOND CYCLE, RECEIVED 50% DOSE REDUCTION
     Route: 065

REACTIONS (18)
  - Lymphoproliferative disorder [Fatal]
  - Haemodynamic instability [Unknown]
  - Drug ineffective [Fatal]
  - Sepsis [Fatal]
  - Pneumonia aspiration [Unknown]
  - Multiple organ dysfunction syndrome [Fatal]
  - Liver disorder [Fatal]
  - Ileus [Unknown]
  - Haemophagocytic lymphohistiocytosis [Fatal]
  - Hypoxia [Unknown]
  - Disseminated intravascular coagulation [Fatal]
  - Deep vein thrombosis [Unknown]
  - Psychotic disorder [Unknown]
  - Stress cardiomyopathy [Unknown]
  - Clostridium difficile infection [Unknown]
  - Diffuse large B-cell lymphoma [Fatal]
  - Lung consolidation [Unknown]
  - Respiratory failure [Unknown]
